FAERS Safety Report 6912649-2 (Version None)
Quarter: 2010Q3

REPORT INFORMATION
  Report Type: 
  Country: None (occurrence: None)
  Receive Date: 20100806
  Receipt Date: 20080918
  Transmission Date: 20110219
  Serious: No
  Sender: FDA-Public Use
  Company Number: US-PFIZER INC-2008078871

PATIENT
  Sex: Female
  Weight: 61.363 kg

DRUGS (5)
  1. DETROL LA [Suspect]
     Indication: POLLAKIURIA
     Dates: start: 20080817
  2. ATENOLOL [Concomitant]
  3. NORVASC [Concomitant]
  4. ZOLOFT [Concomitant]
  5. ACETYLSALICYLIC ACID SRT [Concomitant]

REACTIONS (2)
  - INITIAL INSOMNIA [None]
  - IRRITABILITY [None]
